FAERS Safety Report 8128271-9 (Version None)
Quarter: 2012Q1

REPORT INFORMATION
  Report Type: 
  Country: None (occurrence: None)
  Receive Date: 20120210
  Receipt Date: 20120209
  Transmission Date: 20120608
  Serious: Yes (Other)
  Sender: FDA-Public Use
  Company Number: US-PFIZER INC-2012036342

PATIENT
  Sex: Female
  Weight: 75.737 kg

DRUGS (7)
  1. DITROPAN XL [Concomitant]
     Indication: HYPERTONIC BLADDER
     Dosage: 5 MG, 1X/DAY
  2. TRAMADOL [Concomitant]
     Indication: PAIN
     Dosage: 50 MG, AS NEEDED
  3. CALTRATE 600+D [Concomitant]
     Dosage: UNK, 1X/DAY
  4. CHANTIX [Suspect]
     Indication: SMOKING CESSATION THERAPY
     Dosage: 0.5 MG, 1X/DAY
     Route: 048
     Dates: start: 20120208
  5. ONE-A-DAY [Concomitant]
     Dosage: UNK, 1X/DAY
  6. TAMOXIFEN [Concomitant]
     Indication: BREAST CANCER
     Dosage: 20 MG, 1X/DAY
  7. NAPROXEN [Concomitant]
     Indication: PAIN
     Dosage: 375 MG, AS NEEDED

REACTIONS (1)
  - NEOPLASM MALIGNANT [None]
